FAERS Safety Report 5852156-1 (Version None)
Quarter: 2008Q3

REPORT INFORMATION
  Report Type: 
  Country: None (occurrence: None)
  Receive Date: 20080821
  Receipt Date: 20080812
  Transmission Date: 20090109
  Serious: Yes (Hospitalization, Disabling)
  Sender: FDA-Public Use
  Company Number: FR-JNJFOC-20080604520

PATIENT
  Age: 70 Year
  Sex: Male

DRUGS (4)
  1. REMICADE [Suspect]
     Indication: ERYTHRODERMIC PSORIASIS
     Route: 042
  2. REMICADE [Suspect]
     Indication: PSORIASIS
     Route: 042
  3. SORIATANE [Concomitant]
     Indication: DRUG USE FOR UNKNOWN INDICATION
  4. PHOTOTHERAPY [Concomitant]
     Indication: PSORIASIS

REACTIONS (6)
  - BACTEROIDES INFECTION [None]
  - CHILLS [None]
  - ERYTHRODERMIC PSORIASIS [None]
  - INFUSION RELATED REACTION [None]
  - PYREXIA [None]
  - STAPHYLOCOCCAL SEPSIS [None]
